FAERS Safety Report 7440214-X (Version None)
Quarter: 2011Q2

REPORT INFORMATION
  Report Type: 
  Country: None (occurrence: None)
  Receive Date: 20110427
  Receipt Date: 20110421
  Transmission Date: 20111010
  Serious: Yes (Death, Life-Threatening, Hospitalization)
  Sender: FDA-Public Use
  Company Number: US-CELGENEUS-163-21880-11042729

PATIENT
  Sex: Male

DRUGS (13)
  1. ASPIRIN [Concomitant]
     Dosage: 325 MILLIGRAM
     Route: 065
     Dates: start: 20110127
  2. PLAVIX [Concomitant]
     Dosage: 75 MILLIGRAM
     Route: 065
  3. CALCIUM CALTRATE-D [Concomitant]
     Route: 065
  4. DEXAMETHASONE [Concomitant]
     Route: 065
     Dates: start: 20110127
  5. REVLIMID [Suspect]
     Indication: MULTIPLE MYELOMA
     Dosage: 25 MILLIGRAM
     Route: 048
     Dates: start: 20110127, end: 20110214
  6. VITAMIN B-12 [Concomitant]
     Route: 065
  7. METAMUCIL-2 [Concomitant]
     Route: 065
  8. VITAMIN D [Concomitant]
     Dosage: 2000 IU (INTERNATIONAL UNIT)
     Route: 065
  9. LISINOPRIL [Concomitant]
     Dosage: 20 MILLIGRAM
     Route: 065
  10. SKELAXIN [Concomitant]
     Dosage: 800 MILLIGRAM
     Route: 065
  11. CRESTOR [Concomitant]
     Dosage: 10 MILLIGRAM
     Route: 065
  12. PROTONIX [Concomitant]
     Dosage: 40 MILLIGRAM
     Route: 065
  13. MEGACE [Concomitant]
     Dosage: 200 MILLIGRAM
     Route: 048

REACTIONS (11)
  - URINARY TRACT INFECTION [None]
  - PULMONARY EMBOLISM [None]
  - DEATH [None]
  - GASTROINTESTINAL HAEMORRHAGE [None]
  - SEPSIS [None]
  - ATRIAL FIBRILLATION [None]
  - RENAL FAILURE ACUTE [None]
  - RESPIRATORY FAILURE [None]
  - DEEP VEIN THROMBOSIS [None]
  - PNEUMONIA [None]
  - NEUTROPENIA [None]
